FAERS Safety Report 24245052 (Version 1)
Quarter: 2024Q3

REPORT INFORMATION
  Report Type: Report from Study
  Country: US (occurrence: US)
  Receive Date: 20240823
  Receipt Date: 20240823
  Transmission Date: 20241017
  Serious: Yes (Hospitalization, Other)
  Sender: GILEAD
  Company Number: US-GILEAD-2024-0680687

PATIENT
  Age: 36 Year
  Sex: Male

DRUGS (1)
  1. AZTREONAM LYSINE [Suspect]
     Active Substance: AZTREONAM LYSINE
     Indication: Cystic fibrosis
     Dosage: 75 MG, TID VIA ALTERA NEBULIZER FOR 28 DAYS. USE IN ALTERNATING CYCLES OF 28 DAYS
     Route: 055

REACTIONS (1)
  - Cystic fibrosis [Unknown]
